FAERS Safety Report 14433283 (Version 2)
Quarter: 2020Q1

REPORT INFORMATION
  Report Type: Spontaneous
  Country: US (occurrence: US)
  Receive Date: 20180124
  Receipt Date: 20200127
  Transmission Date: 20200409
  Serious: Yes (Disabling)
  Sender: FDA-Public Use
  Company Number: US-PIRAMAL CRITICAL CARE LIMITED-2017-PEL-003198

PATIENT

DRUGS (3)
  1. GABLOFEN [Suspect]
     Active Substance: BACLOFEN
     Indication: MUSCLE SPASTICITY
     Dosage: 149.8 ?G, QD BOLUS: 10XDAY X50M 10X24
     Route: 037
  2. GABLOFEN [Suspect]
     Active Substance: BACLOFEN
     Dosage: 4 OF 1200.4 MCG/DAY
     Route: 037
  3. GABLOFEN [Suspect]
     Active Substance: BACLOFEN
     Dosage: 1598 ?G, QD
     Route: 037

REACTIONS (7)
  - Musculoskeletal stiffness [Unknown]
  - Device defective [Unknown]
  - Back pain [Unknown]
  - Device difficult to use [Unknown]
  - Abdominal pain [Unknown]
  - Device deployment issue [Unknown]
  - Product dose omission [Unknown]

NARRATIVE: CASE EVENT DATE: 20170628
